FAERS Safety Report 25360311 (Version 1)
Quarter: 2025Q2

REPORT INFORMATION
  Report Type: Spontaneous
  Country: IN (occurrence: IN)
  Receive Date: 20250527
  Receipt Date: 20250527
  Transmission Date: 20250717
  Serious: Yes (Other)
  Sender: CHEPLAPHARM
  Company Number: IN-CHEPLA-2025006503

PATIENT
  Age: 61 Year
  Sex: Female

DRUGS (9)
  1. GANCICLOVIR [Suspect]
     Active Substance: GANCICLOVIR
     Indication: Cytomegalovirus chorioretinitis
  2. GANCICLOVIR [Suspect]
     Active Substance: GANCICLOVIR
     Indication: Cytomegalovirus chorioretinitis
     Dosage: 7.5 MG/KG Q24H?DAILY DOSE: 7.5 MILLIGRAM/KG
  3. GEMCITABINE [Suspect]
     Active Substance: GEMCITABINE
     Indication: Angioimmunoblastic T-cell lymphoma
  4. DEXAMETHASONE [Suspect]
     Active Substance: DEXAMETHASONE
     Indication: Angioimmunoblastic T-cell lymphoma
  5. CYCLOPHOSPHAMIDE [Suspect]
     Active Substance: CYCLOPHOSPHAMIDE
     Indication: Angioimmunoblastic T-cell lymphoma
  6. CARBOPLATIN [Suspect]
     Active Substance: CARBOPLATIN
     Indication: Angioimmunoblastic T-cell lymphoma
  7. ACYCLOVIR [Concomitant]
     Active Substance: ACYCLOVIR
  8. ARTESUNATE [Concomitant]
     Active Substance: ARTESUNATE
  9. granulocyte colony-stimulating factor prophylaxis [Concomitant]

REACTIONS (7)
  - Pancytopenia [Unknown]
  - Generalised tonic-clonic seizure [Unknown]
  - Respiratory distress [Unknown]
  - Cytomegalovirus chorioretinitis [Unknown]
  - Depressed level of consciousness [Unknown]
  - Hypoxia [Unknown]
  - Off label use [Unknown]
